FAERS Safety Report 6737377-8 (Version None)
Quarter: 2010Q2

REPORT INFORMATION
  Report Type: 
  Country: None (occurrence: None)
  Receive Date: 20100524
  Receipt Date: 20100513
  Transmission Date: 20101027
  Serious: Yes (Hospitalization, Other)
  Sender: FDA-Public Use
  Company Number: US-JNJFOC-20100506462

PATIENT
  Sex: Male
  Weight: 14.06 kg

DRUGS (5)
  1. CHILDREN'S MOTRIN [Suspect]
     Indication: EAR INFECTION
     Route: 048
  2. CHILDREN'S MOTRIN [Suspect]
     Indication: PYREXIA
     Route: 048
  3. CHILDREN'S TYLENOL [Suspect]
     Indication: PYREXIA
     Route: 048
  4. CHILDREN'S TYLENOL [Suspect]
     Indication: EAR INFECTION
     Route: 048
  5. IRON [Concomitant]
     Indication: DRUG USE FOR UNKNOWN INDICATION

REACTIONS (5)
  - BLOOD COUNT ABNORMAL [None]
  - FAECES DISCOLOURED [None]
  - FLATULENCE [None]
  - HAEMATEMESIS [None]
  - PRODUCT QUALITY ISSUE [None]
